FAERS Safety Report 11604034 (Version 1)
Quarter: 2015Q4

REPORT INFORMATION
  Report Type: Spontaneous
  Country: US (occurrence: None)
  Receive Date: 20151006
  Receipt Date: 20151006
  Transmission Date: 20160304
  Serious: Yes (Life-Threatening, Hospitalization, Disabling)
  Sender: FDA-Public Use
  Company Number: None

PATIENT
  Age: 41 Year
  Sex: Female

DRUGS (10)
  1. WARFARIN [Concomitant]
     Active Substance: WARFARIN
  2. ESTRADIOL 2 MG TAYLOR HEALTH + WELLNESS CENTRER [Suspect]
     Active Substance: ESTRADIOL
     Indication: MENSTRUAL DISORDER
     Dosage: BY MOUTH, 20 PILLS
     Dates: start: 20150729, end: 20150804
  3. ASPIRIN. [Concomitant]
     Active Substance: ASPIRIN
  4. FERROUS GLUCONATE [Concomitant]
     Active Substance: FERROUS GLUCONATE
  5. GABAPENTIN. [Concomitant]
     Active Substance: GABAPENTIN
  6. CLOPIDOGREL [Concomitant]
     Active Substance: CLOPIDOGREL BISULFATE
  7. DULOXETINE. [Concomitant]
     Active Substance: DULOXETINE
  8. OXYCODONE [Concomitant]
     Active Substance: OXYCODONE
  9. MIRALAX [Concomitant]
     Active Substance: POLYETHYLENE GLYCOL 3350
  10. HYDROCOD/ACETA [Concomitant]

REACTIONS (5)
  - Blood glucose increased [None]
  - Leg amputation [None]
  - Thrombosis [None]
  - Pulmonary thrombosis [None]
  - Cardiac disorder [None]

NARRATIVE: CASE EVENT DATE: 20150804
